FAERS Safety Report 8182331-5 (Version None)
Quarter: 2012Q1

REPORT INFORMATION
  Report Type: 
  Country: None (occurrence: None)
  Receive Date: 20120302
  Receipt Date: 20120229
  Transmission Date: 20120608
  Serious: Yes (Death)
  Sender: FDA-Public Use
  Company Number: PHHY2012AR018088

PATIENT
  Sex: Male

DRUGS (1)
  1. EXFORGE HCT [Suspect]
     Indication: ARTERIOSCLEROSIS CORONARY ARTERY
     Dosage: 1 DF (160/5/UNK), DAILY

REACTIONS (1)
  - CARDIO-RESPIRATORY ARREST [None]
